FAERS Safety Report 5139042-X (Version None)
Quarter: 2006Q4

REPORT INFORMATION
  Report Type: 
  Country: None (occurrence: None)
  Receive Date: 20061030
  Receipt Date: 20060612
  Transmission Date: 20070319
  Serious: Yes (Hospitalization)
  Sender: FDA-Public Use
  Company Number: US-GLAXOSMITHKLINE-A0608653A

PATIENT
  Age: 80 Year
  Sex: Female

DRUGS (12)
  1. ADVAIR HFA [Suspect]
     Indication: CHRONIC OBSTRUCTIVE PULMONARY DISEASE
     Route: 055
  2. ACTONEL [Concomitant]
  3. COMBIVENT [Concomitant]
  4. MUCINEX [Concomitant]
  5. LISINOPRIL [Concomitant]
  6. UNSPECIFIED MEDICATION [Concomitant]
  7. EVISTA [Concomitant]
  8. VITAMIN E [Concomitant]
  9. VITAMIN B-12 [Concomitant]
  10. CALCIUM SUPPLEMENT [Concomitant]
  11. LONG-TERM OXYGEN THERAPY [Concomitant]
  12. PREDNISONE TAB [Concomitant]
     Dates: start: 20051101, end: 20060301

REACTIONS (2)
  - BONE DENSITY DECREASED [None]
  - PNEUMONIA [None]
